FAERS Safety Report 8552787-4 (Version None)
Quarter: 2012Q3

REPORT INFORMATION
  Report Type: 
  Country: None (occurrence: None)
  Receive Date: 20120731
  Receipt Date: 20120725
  Transmission Date: 20120928
  Serious: Yes (Hospitalization)
  Sender: FDA-Public Use
  Company Number: PHEH2012US014643

PATIENT
  Sex: Female

DRUGS (2)
  1. RECLAST [Suspect]
     Dosage: UNK
     Route: 042
     Dates: start: 20120328
  2. RECLAST [Suspect]
     Dosage: UNK
     Route: 042
     Dates: start: 20110303

REACTIONS (1)
  - VENOUS INJURY [None]
